FAERS Safety Report 17145317 (Version 1)
Quarter: 2019Q4

REPORT INFORMATION
  Report Type: Spontaneous
  Country: US (occurrence: US)
  Receive Date: 20191212
  Receipt Date: 20191212
  Transmission Date: 20200122
  Serious: No
  Sender: FDA-Public Use
  Company Number: US-BAUSCH-BL-2019-063054

PATIENT
  Age: 66 Year
  Sex: Female

DRUGS (3)
  1. PROLENSA [Suspect]
     Active Substance: BROMFENAC SODIUM
     Indication: POSTOPERATIVE CARE
     Dosage: IN RIGHT EYE
     Route: 047
     Dates: start: 20191023, end: 20191023
  2. LOTEMAX SM [Suspect]
     Active Substance: LOTEPREDNOL ETABONATE
     Dosage: DOSE INCREASED, IN RIGHT EYE
     Route: 047
     Dates: start: 201910
  3. LOTEMAX SM [Suspect]
     Active Substance: LOTEPREDNOL ETABONATE
     Indication: POSTOPERATIVE CARE
     Dosage: TWICE DAILY, IN RIGHT EYE
     Route: 047
     Dates: start: 20191023, end: 201910

REACTIONS (2)
  - Drug hypersensitivity [Recovered/Resolved]
  - Inappropriate schedule of product administration [Unknown]

NARRATIVE: CASE EVENT DATE: 20191023
